FAERS Safety Report 26092116 (Version 2)
Quarter: 2025Q4

REPORT INFORMATION
  Report Type: Report from Study
  Country: GB (occurrence: GB)
  Receive Date: 20251126
  Receipt Date: 20251203
  Transmission Date: 20260118
  Serious: Yes (Hospitalization, Other)
  Sender: TAKEDA
  Company Number: GB-TAKEDA-2025TUS106354

PATIENT
  Age: 51 Year
  Sex: Male

DRUGS (2)
  1. VEDOLIZUMAB [Suspect]
     Active Substance: VEDOLIZUMAB
     Indication: Crohn^s disease
     Dosage: 108 MILLIGRAM, Q2WEEKS
     Dates: start: 20240611
  2. VEDOLIZUMAB [Suspect]
     Active Substance: VEDOLIZUMAB
     Dosage: 108 MILLIGRAM, Q2WEEKS

REACTIONS (4)
  - Crohn^s disease [Unknown]
  - Hypertension [Unknown]
  - Product administration error [Unknown]
  - Injection site extravasation [Unknown]
